FAERS Safety Report 18465768 (Version 1)
Quarter: 2020Q4

REPORT INFORMATION
  Report Type: Spontaneous
  Country: KZ (occurrence: KZ)
  Receive Date: 20201104
  Receipt Date: 20201104
  Transmission Date: 20210114
  Serious: Yes (Other)
  Sender: FDA-Public Use
  Company Number: KZ-SEATTLE GENETICS-2020SGN04892

PATIENT
  Sex: Female
  Weight: 40 kg

DRUGS (1)
  1. ADCETRIS [Suspect]
     Active Substance: BRENTUXIMAB VEDOTIN
     Indication: HODGKIN^S DISEASE
     Dosage: 72 MILLIGRAM
     Route: 042

REACTIONS (1)
  - Hodgkin^s disease [Unknown]
